FAERS Safety Report 21569690 (Version 2)
Quarter: 2023Q2

REPORT INFORMATION
  Report Type: Spontaneous
  Country: US (occurrence: US)
  Receive Date: 20221109
  Receipt Date: 20230418
  Transmission Date: 20230722
  Serious: No
  Sender: FDA-Public Use
  Company Number: US-UNITED THERAPEUTICS-UNT-2022-024350

PATIENT
  Sex: Female

DRUGS (2)
  1. REMODULIN [Suspect]
     Active Substance: TREPROSTINIL
     Indication: Pulmonary arterial hypertension
     Dosage: UNK, CONTINUING
     Route: 058
     Dates: start: 20210329
  2. REMODULIN [Suspect]
     Active Substance: TREPROSTINIL
     Dosage: 0.1352 ?G/KG, CONTINUING
     Route: 058

REACTIONS (6)
  - Infusion site pain [Recovering/Resolving]
  - Skin striae [Not Recovered/Not Resolved]
  - Device operational issue [Unknown]
  - Device information output issue [Unknown]
  - Infusion site erythema [Recovering/Resolving]
  - Infusion site pruritus [Recovering/Resolving]
